FAERS Safety Report 12340209 (Version 1)
Quarter: 2016Q2

REPORT INFORMATION
  Report Type: Spontaneous
  Country: US (occurrence: None)
  Receive Date: 20160505
  Receipt Date: 20160505
  Transmission Date: 20160815
  Serious: Yes (Disabling)
  Sender: FDA-Public Use
  Company Number: None

PATIENT
  Age: 32 Year
  Sex: Female
  Weight: 58.97 kg

DRUGS (6)
  1. TOPIRAMATE, 25 MG [Suspect]
     Active Substance: TOPIRAMATE
     Indication: MIGRAINE
     Dosage: 75 CAPSULE(S) ONCE A DAY  TAKEN BY MOUTH
     Route: 048
  2. MAGNESIUM [Concomitant]
     Active Substance: MAGNESIUM
  3. WOMEN^S MULTIVITAMIN [Concomitant]
  4. FISH OIL [Concomitant]
     Active Substance: FISH OIL
  5. IRON [Concomitant]
     Active Substance: IRON
  6. CALCIUM [Concomitant]
     Active Substance: CALCIUM

REACTIONS (1)
  - Alopecia [None]

NARRATIVE: CASE EVENT DATE: 20150704
